FAERS Safety Report 8040840-3 (Version None)
Quarter: 2012Q1

REPORT INFORMATION
  Report Type: 
  Country: None (occurrence: None)
  Receive Date: 20120112
  Receipt Date: 20120105
  Transmission Date: 20120608
  Serious: Yes (Hospitalization, Other)
  Sender: FDA-Public Use
  Company Number: US-BIOGENIDEC-2011BI032852

PATIENT
  Age: 60 Year
  Sex: Female

DRUGS (2)
  1. TYSABRI [Suspect]
     Indication: MULTIPLE SCLEROSIS
     Route: 042
     Dates: start: 20100323
  2. TYSABRI [Suspect]
     Route: 042
     Dates: start: 20071107, end: 20071107

REACTIONS (3)
  - BREAST CANCER [None]
  - SMALL INTESTINAL OBSTRUCTION [None]
  - BREAST MASS [None]
